FAERS Safety Report 8048099-8 (Version None)
Quarter: 2012Q1

REPORT INFORMATION
  Report Type: 
  Country: None (occurrence: None)
  Receive Date: 20120112
  Receipt Date: 20120112
  Transmission Date: 20120608
  Serious: No
  Sender: FDA-Public Use
  Company Number: None

PATIENT
  Age: 74 Year
  Sex: Female
  Weight: 63.5036 kg

DRUGS (10)
  1. AZITHROMYCIN [Suspect]
     Indication: COUGH
     Dosage: 2 PILLS FIRST DAY THEN 1 PILL NEXT 4 DAYS
     Dates: start: 20111205
  2. AZITHROMYCIN [Suspect]
     Indication: OROPHARYNGEAL PAIN
     Dosage: 2 PILLS FIRST DAY THEN 1 PILL NEXT 4 DAYS
     Dates: start: 20111205
  3. AZITHROMYCIN [Suspect]
     Indication: COUGH
     Dosage: 2 PILLS FIRST DAY THEN 1 PILL NEXT 4 DAYS
     Dates: start: 20111206
  4. AZITHROMYCIN [Suspect]
     Indication: OROPHARYNGEAL PAIN
     Dosage: 2 PILLS FIRST DAY THEN 1 PILL NEXT 4 DAYS
     Dates: start: 20111206
  5. AZITHROMYCIN [Suspect]
     Indication: COUGH
     Dosage: 2 PILLS FIRST DAY THEN 1 PILL NEXT 4 DAYS
     Dates: start: 20111203
  6. AZITHROMYCIN [Suspect]
     Indication: OROPHARYNGEAL PAIN
     Dosage: 2 PILLS FIRST DAY THEN 1 PILL NEXT 4 DAYS
     Dates: start: 20111203
  7. AZITHROMYCIN [Suspect]
     Indication: COUGH
     Dosage: 2 PILLS FIRST DAY THEN 1 PILL NEXT 4 DAYS
     Dates: start: 20111204
  8. AZITHROMYCIN [Suspect]
     Indication: OROPHARYNGEAL PAIN
     Dosage: 2 PILLS FIRST DAY THEN 1 PILL NEXT 4 DAYS
     Dates: start: 20111204
  9. AZITHROMYCIN [Suspect]
     Indication: COUGH
     Dosage: 2 PILLS FIRST DAY THEN 1 PILL NEXT 4 DAYS
     Dates: start: 20111202
  10. AZITHROMYCIN [Suspect]
     Indication: OROPHARYNGEAL PAIN
     Dosage: 2 PILLS FIRST DAY THEN 1 PILL NEXT 4 DAYS
     Dates: start: 20111202

REACTIONS (5)
  - HEARING IMPAIRED [None]
  - EAR PAIN [None]
  - TINNITUS [None]
  - MIDDLE EAR EFFUSION [None]
  - SWELLING [None]
